FAERS Safety Report 24269821 (Version 1)
Quarter: 2024Q3

REPORT INFORMATION
  Report Type: Spontaneous
  Country: ES (occurrence: ES)
  Receive Date: 20240830
  Receipt Date: 20240830
  Transmission Date: 20241017
  Serious: Yes (Other)
  Sender: PFIZER
  Company Number: ES-ROCHE-10000061679

PATIENT
  Age: 61 Year
  Sex: Female

DRUGS (7)
  1. RITUXIMAB [Suspect]
     Active Substance: RITUXIMAB
     Indication: Systemic lupus erythematosus
     Dosage: 2 DOSES OF 1G, 15 DAYS APART
     Dates: start: 202312
  2. RITUXIMAB [Suspect]
     Active Substance: RITUXIMAB
     Indication: Autoimmune anaemia
  3. RITUXIMAB [Suspect]
     Active Substance: RITUXIMAB
     Indication: Thrombocytopenia
  4. METHOTREXATE [Concomitant]
     Active Substance: METHOTREXATE
  5. PREDNISONE [Concomitant]
     Active Substance: PREDNISONE
     Dosage: UNK
  6. CELLCEPT [Concomitant]
     Active Substance: MYCOPHENOLATE MOFETIL
     Dosage: UNK
  7. AZATHIOPRINE [Concomitant]
     Active Substance: AZATHIOPRINE
     Dosage: UNK

REACTIONS (2)
  - Cystoid macular oedema [Recovered/Resolved]
  - Off label use [Unknown]
